FAERS Safety Report 23148911 (Version 3)
Quarter: 2023Q4

REPORT INFORMATION
  Report Type: Spontaneous
  Country: US (occurrence: US)
  Receive Date: 20231106
  Receipt Date: 20231219
  Transmission Date: 20240109
  Serious: No
  Sender: FDA-Public Use
  Company Number: US-PFIZER INC-202300327846

PATIENT
  Age: 10 Year
  Sex: Female
  Weight: 60.771 kg

DRUGS (1)
  1. GENOTROPIN [Suspect]
     Active Substance: SOMATROPIN
     Indication: Prader-Willi syndrome
     Dosage: 0.4 MG, DAILY

REACTIONS (3)
  - Poor quality device used [Unknown]
  - Product storage error [Unknown]
  - Device physical property issue [Unknown]
